FAERS Safety Report 24216234 (Version 7)
Quarter: 2024Q4

REPORT INFORMATION
  Report Type: Spontaneous
  Country: CH (occurrence: CH)
  Receive Date: 20240816
  Receipt Date: 20241029
  Transmission Date: 20250115
  Serious: Yes (Death)
  Sender: ROCHE
  Company Number: CH-002147023-NVSC2024CH130386

PATIENT
  Sex: Female

DRUGS (1)
  1. LUCENTIS [Suspect]
     Active Substance: RANIBIZUMAB
     Indication: Product used for unknown indication
     Dosage: UNK (RIGHT EYE) (6 WEEK)
     Route: 050
     Dates: start: 2016, end: 202405

REACTIONS (3)
  - Neoplasm malignant [Fatal]
  - Renal failure [Fatal]
  - Intraocular pressure increased [Recovered/Resolved]

NARRATIVE: CASE EVENT DATE: 20240516
